FAERS Safety Report 18082559 (Version 1)
Quarter: 2020Q3

REPORT INFORMATION
  Report Type: Spontaneous
  Country: AT (occurrence: AT)
  Receive Date: 20200729
  Receipt Date: 20200729
  Transmission Date: 20201103
  Serious: Yes (Other)
  Sender: FDA-Public Use
  Company Number: AT-TEVA-2020-AT-1807110

PATIENT
  Age: 71 Year
  Sex: Female

DRUGS (1)
  1. DICLOBENE 50 MG ? FILMTABLETTEN [Suspect]
     Active Substance: DICLOFENAC SODIUM
     Dosage: ACCORDING TO SPECIALIST INFORMATION
     Route: 065
     Dates: start: 20191209, end: 20191209

REACTIONS (2)
  - Drug intolerance [Unknown]
  - Mouth swelling [Unknown]

NARRATIVE: CASE EVENT DATE: 20191209
